FAERS Safety Report 9465904 (Version 1)
Quarter: 2013Q3

REPORT INFORMATION
  Report Type: Spontaneous
  Country: CA (occurrence: CA)
  Receive Date: 20130820
  Receipt Date: 20130820
  Transmission Date: 20140515
  Serious: Yes (Other)
  Sender: FDA-Public Use
  Company Number: CA-ASTELLAS-2013US008661

PATIENT
  Sex: Female
  Weight: 69 kg

DRUGS (2)
  1. MYRBETRIQ [Suspect]
     Indication: HYPERTONIC BLADDER
     Dosage: 25 MG, UID/QD
     Route: 048
     Dates: start: 20130709, end: 20130811
  2. MEDICATION [Suspect]
     Indication: SLEEP DISORDER
     Dosage: UNK
     Route: 065

REACTIONS (4)
  - Feeling abnormal [Recovering/Resolving]
  - Abasia [Recovering/Resolving]
  - Vulvovaginal pain [Not Recovered/Not Resolved]
  - Hypertension [Recovering/Resolving]
